FAERS Safety Report 5454022-2 (Version None)
Quarter: 2007Q3

REPORT INFORMATION
  Report Type: 
  Country: None (occurrence: None)
  Receive Date: 20070917
  Receipt Date: 20070228
  Transmission Date: 20080115
  Serious: Yes (Hospitalization)
  Sender: FDA-Public Use
  Company Number: US-ASTRAZENECA-2006UW07030

PATIENT
  Age: 37 Year
  Sex: Female
  Weight: 70.5 kg

DRUGS (9)
  1. SEROQUEL [Suspect]
     Indication: SCHIZOPHRENIA
     Route: 048
     Dates: start: 19991101, end: 20021001
  2. ABILIFY [Concomitant]
  3. CLOZARIL [Concomitant]
  4. GEODON [Concomitant]
  5. HALDOL [Concomitant]
  6. RISPERDAL [Concomitant]
     Dates: start: 20020101
  7. STELAZINE [Concomitant]
     Dates: start: 20010101
  8. THORAZINE [Concomitant]
  9. ZYPREXA [Concomitant]
     Dates: start: 19980101

REACTIONS (2)
  - TYPE 2 DIABETES MELLITUS [None]
  - WEIGHT INCREASED [None]
